FAERS Safety Report 8184313-6 (Version None)
Quarter: 2012Q1

REPORT INFORMATION
  Report Type: 
  Country: None (occurrence: None)
  Receive Date: 20120305
  Receipt Date: 20120227
  Transmission Date: 20120608
  Serious: Yes (Hospitalization)
  Sender: FDA-Public Use
  Company Number: US-ABBOTT-12P-163-0909344-00

PATIENT
  Age: 58 Year
  Sex: Female

DRUGS (3)
  1. UNKNOWN MEDICATIONS [Concomitant]
     Indication: PRODUCT USED FOR UNKNOWN INDICATION
  2. HUMIRA [Suspect]
     Indication: RHEUMATOID ARTHRITIS
     Dates: start: 20080101, end: 20110201
  3. HUMIRA [Suspect]
     Dates: start: 20111201

REACTIONS (9)
  - HOSPITALISATION [None]
  - KERATOCONUS [None]
  - DRUG EFFECT DECREASED [None]
  - FIBROMYALGIA [None]
  - DRUG INEFFECTIVE [None]
  - UNEVALUABLE EVENT [None]
  - MALAISE [None]
  - IMPATIENCE [None]
  - HYPERTENSION [None]
